FAERS Safety Report 8317059-1 (Version None)
Quarter: 2012Q2

REPORT INFORMATION
  Report Type: 
  Country: None (occurrence: None)
  Receive Date: 20120427
  Receipt Date: 20120420
  Transmission Date: 20120825
  Serious: Yes (Other)
  Sender: FDA-Public Use
  Company Number: BR-PFIZER INC-2012099478

PATIENT
  Age: 50 Year
  Sex: Female

DRUGS (2)
  1. TOLTERODINE TARTRATE [Suspect]
     Dosage: 4 MG, UNK
  2. TOLTERODINE TARTRATE [Suspect]
     Indication: HYPERTONIC BLADDER
     Dosage: 2 MG, UNK
     Route: 048
     Dates: start: 20120301

REACTIONS (4)
  - RENAL COLIC [None]
  - DYSURIA [None]
  - BLADDER DISCOMFORT [None]
  - URINARY INCONTINENCE [None]
